FAERS Safety Report 18975100 (Version 2)
Quarter: 2021Q2

REPORT INFORMATION
  Report Type: Spontaneous
  Country: US (occurrence: US)
  Receive Date: 20210305
  Receipt Date: 20210403
  Transmission Date: 20210717
  Serious: No
  Sender: FDA-Public Use
  Company Number: US-AMGEN-USASP2021030667

PATIENT
  Age: 54 Year
  Sex: Male
  Weight: 100 kg

DRUGS (2)
  1. VECTIBIX [Suspect]
     Active Substance: PANITUMUMAB
     Indication: COLON CANCER
     Dosage: 700 MILLIGRAM
     Route: 065
     Dates: start: 20201007
  2. VECTIBIX [Suspect]
     Active Substance: PANITUMUMAB
     Dosage: 600 MILLIGRAM (DOSE DECREASED)
     Route: 065

REACTIONS (2)
  - Weight decreased [Unknown]
  - Intercepted medication error [Unknown]

NARRATIVE: CASE EVENT DATE: 20210223
